FAERS Safety Report 4504594-7 (Version None)
Quarter: 2004Q4

REPORT INFORMATION
  Report Type: 
  Country: None (occurrence: None)
  Receive Date: 20041118
  Receipt Date: 20041110
  Transmission Date: 20050328
  Serious: Yes (Other)
  Sender: FDA-Public Use
  Company Number: BR-GLAXOSMITHKLINE-A0534193A

PATIENT
  Sex: Male

DRUGS (1)
  1. CLAVULIN [Suspect]
     Indication: DRUG USE FOR UNKNOWN INDICATION
     Dosage: 5ML TWICE PER DAY
     Route: 048
     Dates: start: 20040914, end: 20041004

REACTIONS (4)
  - DRUG INEFFECTIVE [None]
  - PHARYNGOLARYNGEAL PAIN [None]
  - PYREXIA [None]
  - TONSILLITIS [None]
